FAERS Safety Report 5303129-9 (Version None)
Quarter: 2007Q2

REPORT INFORMATION
  Report Type: 
  Country: None (occurrence: None)
  Receive Date: 20070420
  Receipt Date: 20070409
  Transmission Date: 20071010
  Serious: Yes (Other)
  Sender: FDA-Public Use
  Company Number: PHEH2007US04713

PATIENT
  Age: 72 Year
  Sex: Female

DRUGS (7)
  1. PREMARIN [Concomitant]
  2. LISINOPRIL W/HYDROCHLOROTHIAZIDE [Concomitant]
  3. ATENOLOL [Concomitant]
  4. LIBRAX [Concomitant]
  5. CRESTOR [Concomitant]
  6. REGLAN [Concomitant]
  7. ZELNORM [Suspect]
     Indication: IRRITABLE BOWEL SYNDROME
     Dosage: 6 MG, BID
     Dates: start: 20060101, end: 20070101

REACTIONS (2)
  - HEMIPARESIS [None]
  - SPEECH DISORDER [None]
